FAERS Safety Report 9605904 (Version 3)
Quarter: 2013Q4

REPORT INFORMATION
  Report Type: Spontaneous
  Country: IT (occurrence: IT)
  Receive Date: 20131008
  Receipt Date: 20131111
  Transmission Date: 20140711
  Serious: Yes (Hospitalization)
  Sender: FDA-Public Use
  Company Number: IT-009507513-1310ITA001258

PATIENT
  Age: 35 Year
  Sex: Male

DRUGS (1)
  1. DECA-DURABOLIN [Suspect]
     Dosage: 25 MG/ML, TOTAL
     Route: 030
     Dates: start: 20130806, end: 20130806

REACTIONS (1)
  - Chest pain [Recovering/Resolving]
